FAERS Safety Report 9222088 (Version 4)
Quarter: 2014Q1

REPORT INFORMATION
  Report Type: Spontaneous
  Country: GB (occurrence: GB)
  Receive Date: 20130410
  Receipt Date: 20140324
  Transmission Date: 20141002
  Serious: Yes (Death)
  Sender: FDA-Public Use
  Company Number: GB-MYLANLABS-2013S1007043

PATIENT
  Age: 87 Year
  Sex: Male
  Weight: 68 kg

DRUGS (9)
  1. CLARITHROMYCIN [Suspect]
     Indication: STAPHYLOCOCCAL INFECTION
     Route: 048
     Dates: start: 20121101, end: 20130211
  2. CLARITHROMYCIN [Interacting]
     Indication: OSTEOMYELITIS
     Route: 048
     Dates: start: 20121101, end: 20130211
  3. SIMVASTATIN [Interacting]
     Indication: HYPERCHOLESTEROLAEMIA
     Route: 048
     Dates: start: 20130211, end: 20130218
  4. LANSOPRAZOLE [Interacting]
     Indication: PRODUCT USED FOR UNKNOWN INDICATION
  5. FUSIDIC ACID [Interacting]
     Indication: STAPHYLOCOCCAL INFECTION
     Route: 048
     Dates: start: 20121220, end: 20130211
  6. FUSIDIC ACID [Interacting]
     Indication: OSTEOMYELITIS
     Route: 048
     Dates: start: 20121220, end: 20130211
  7. ASPIRIN [Concomitant]
     Indication: PRODUCT USED FOR UNKNOWN INDICATION
  8. LANSOPRAZOLE [Concomitant]
     Indication: PRODUCT USED FOR UNKNOWN INDICATION
  9. LANTUS [Concomitant]
     Indication: PRODUCT USED FOR UNKNOWN INDICATION

REACTIONS (6)
  - Rhabdomyolysis [Fatal]
  - Medication error [Not Recovered/Not Resolved]
  - Renal failure acute [Fatal]
  - Sepsis [Fatal]
  - Drug interaction [Unknown]
  - Incorrect drug administration duration [Unknown]
